FAERS Safety Report 17968621 (Version 1)
Quarter: 2020Q3

REPORT INFORMATION
  Report Type: Spontaneous
  Country: US (occurrence: US)
  Receive Date: 20200701
  Receipt Date: 20200701
  Transmission Date: 20201103
  Serious: No
  Sender: FDA-Public Use
  Company Number: None

PATIENT
  Age: 41 Year
  Sex: Male
  Weight: 101.16 kg

DRUGS (11)
  1. MEKTOVI [Suspect]
     Active Substance: BINIMETINIB
     Indication: NEOPLASM MALIGNANT
     Route: 048
     Dates: start: 20200320, end: 20200701
  2. FLUTICASONE. [Concomitant]
     Active Substance: FLUTICASONE
  3. BRAFTOVI [Suspect]
     Active Substance: ENCORAFENIB
     Indication: NEOPLASM MALIGNANT
     Route: 048
     Dates: start: 20200320, end: 20200701
  4. CELECOXIB. [Concomitant]
     Active Substance: CELECOXIB
  5. BRAFTOVI [Suspect]
     Active Substance: ENCORAFENIB
     Indication: MALIGNANT MELANOMA
     Route: 048
     Dates: start: 20200320, end: 20200701
  6. ASPIRIN 81 [Concomitant]
     Active Substance: ASPIRIN
  7. MULTIVITAMIN ADULT [Concomitant]
  8. MULTI VITAMIN DAILY [Concomitant]
  9. MEKTOVI [Suspect]
     Active Substance: BINIMETINIB
     Indication: MALIGNANT MELANOMA
     Route: 048
     Dates: start: 20200320, end: 20200701
  10. TRAZODONE [Concomitant]
     Active Substance: TRAZODONE HYDROCHLORIDE
  11. VARDENAFIL [Concomitant]
     Active Substance: VARDENAFIL HYDROCHLORIDE

REACTIONS (2)
  - Pyrexia [None]
  - Rash [None]

NARRATIVE: CASE EVENT DATE: 20200701
